FAERS Safety Report 13488012 (Version 2)
Quarter: 2017Q2

REPORT INFORMATION
  Report Type: Spontaneous
  Country: US (occurrence: US)
  Receive Date: 20170426
  Receipt Date: 20170524
  Transmission Date: 20170830
  Serious: No
  Sender: FDA-Public Use
  Company Number: US-009507513-1704USA012622

PATIENT
  Age: 61 Year
  Sex: Male
  Weight: 138.32 kg

DRUGS (2)
  1. ALBUTEROL SULFATE. [Concomitant]
     Active Substance: ALBUTEROL SULFATE
  2. DULERA [Suspect]
     Active Substance: FORMOTEROL FUMARATE DIHYDRATE\MOMETASONE FUROATE
     Indication: BRONCHITIS CHRONIC
     Dosage: 2 PUFFS TWICE DAILY
     Route: 055
     Dates: start: 20160115

REACTIONS (6)
  - Respiratory disorder [Recovered/Resolved]
  - Drug ineffective for unapproved indication [Recovered/Resolved]
  - Product quality issue [Unknown]
  - Drug dose omission [Unknown]
  - Dyspnoea [Recovered/Resolved]
  - Cough [Recovered/Resolved]

NARRATIVE: CASE EVENT DATE: 20170314
